FAERS Safety Report 10303624 (Version 2)
Quarter: 2015Q3

REPORT INFORMATION
  Report Type: Spontaneous
  Country: US (occurrence: US)
  Receive Date: 20140714
  Receipt Date: 20150814
  Transmission Date: 20151125
  Serious: Yes (Hospitalization)
  Sender: FDA-Public Use
  Company Number: US-GILEAD-2013-0080110

PATIENT
  Age: 45 Year
  Sex: Male

DRUGS (3)
  1. LETAIRIS [Suspect]
     Active Substance: AMBRISENTAN
     Indication: PRODUCT USED FOR UNKNOWN INDICATION
     Dosage: 5 MG, QD
     Route: 048
     Dates: start: 20120201
  2. LASIX [Concomitant]
     Active Substance: FUROSEMIDE
  3. VENTAVIS [Concomitant]
     Active Substance: ILOPROST

REACTIONS (1)
  - Fluid retention [Unknown]
